FAERS Safety Report 6762022-5 (Version None)
Quarter: 2010Q2

REPORT INFORMATION
  Report Type: 
  Country: None (occurrence: None)
  Receive Date: 20100609
  Receipt Date: 20100527
  Transmission Date: 20101027
  Serious: Yes (Other)
  Sender: FDA-Public Use
  Company Number: PHHY2010CN35369

PATIENT
  Age: 36 Year
  Sex: Female

DRUGS (2)
  1. IMATINIB [Suspect]
     Indication: CHRONIC MYELOID LEUKAEMIA
     Route: 048
  2. IMATINIB [Suspect]
     Dosage: 400 MG DAILY
     Route: 048

REACTIONS (3)
  - STEM CELL TRANSPLANT [None]
  - THERAPEUTIC RESPONSE DECREASED [None]
  - TREATMENT FAILURE [None]
